FAERS Safety Report 5478931-3 (Version None)
Quarter: 2007Q4

REPORT INFORMATION
  Report Type: 
  Country: None (occurrence: None)
  Receive Date: 20071002
  Receipt Date: 20070920
  Transmission Date: 20080405
  Serious: Yes (Hospitalization)
  Sender: FDA-Public Use
  Company Number: 2007BI020293

PATIENT
  Age: 53 Year
  Sex: Female

DRUGS (1)
  1. NATALIZUMAB [Suspect]
     Indication: MULTIPLE SCLEROSIS
     Dosage: ; IV
     Route: 042
     Dates: start: 20060830

REACTIONS (4)
  - DEHYDRATION [None]
  - GASTROINTESTINAL DISORDER [None]
  - NAUSEA [None]
  - VOMITING [None]
